FAERS Safety Report 5045207-8 (Version None)
Quarter: 2006Q3

REPORT INFORMATION
  Report Type: 
  Country: None (occurrence: None)
  Receive Date: 20060707
  Receipt Date: 20060407
  Transmission Date: 20061208
  Serious: Yes (Other)
  Sender: FDA-Public Use
  Company Number: FR-GLAXOSMITHKLINE-B0420152A

PATIENT
  Age: 12 Year
  Sex: Male
  Weight: 41.5 kg

DRUGS (4)
  1. RETROVIR [Suspect]
     Indication: HIV INFECTION
     Dosage: 250MG TWICE PER DAY
     Route: 048
     Dates: start: 20050101, end: 20060412
  2. VIDEX [Concomitant]
     Indication: HIV INFECTION
     Dosage: 200MG PER DAY
     Route: 048
     Dates: start: 20030930, end: 20060529
  3. VIRACEPT [Concomitant]
     Indication: HIV INFECTION
     Dosage: 750MG THREE TIMES PER DAY
     Route: 048
     Dates: start: 20030930
  4. BACTRIM DS [Concomitant]
     Indication: IMMUNODEFICIENCY
     Route: 065
     Dates: start: 20030930

REACTIONS (7)
  - ANAEMIA [None]
  - ANISOCYTOSIS [None]
  - LEUKOPENIA [None]
  - NEUTROPENIA [None]
  - PANCYTOPENIA [None]
  - POIKILOCYTOSIS [None]
  - RED BLOOD CELL TARGET CELLS PRESENT [None]
